FAERS Safety Report 20814366 (Version 1)
Quarter: 2022Q2

REPORT INFORMATION
  Report Type: Spontaneous
  Country: US (occurrence: US)
  Receive Date: 20220511
  Receipt Date: 20220511
  Transmission Date: 20220721
  Serious: Yes (Other)
  Sender: FDA-Public Use
  Company Number: US-BRISTOL-MYERS SQUIBB COMPANY-2022-032759

PATIENT
  Age: 57 Year
  Sex: Female
  Weight: 97.069 kg

DRUGS (1)
  1. REVLIMID [Suspect]
     Active Substance: LENALIDOMIDE
     Indication: Plasma cell myeloma
     Dosage: FREQUENCY: D1-21 Q28 DAYS
     Route: 048
     Dates: start: 20220331

REACTIONS (2)
  - Neutropenia [Recovering/Resolving]
  - Dry skin [Recovering/Resolving]
